FAERS Safety Report 10160330 (Version 1)
Quarter: 2014Q2

REPORT INFORMATION
  Report Type: Spontaneous
  Country: US (occurrence: US)
  Receive Date: 20140508
  Receipt Date: 20140508
  Transmission Date: 20141212
  Serious: Yes (Hospitalization)
  Sender: FDA-Public Use
  Company Number: US-GLAXOSMITHKLINE-A1071571A

PATIENT
  Age: 67 Year
  Sex: Female

DRUGS (15)
  1. ADVAIR [Suspect]
     Indication: CHRONIC OBSTRUCTIVE PULMONARY DISEASE
     Dosage: 1PUFF TWICE PER DAY
     Route: 055
  2. SPIRIVA [Concomitant]
  3. PLAVIX [Concomitant]
  4. ASPIRIN [Concomitant]
  5. SIMVASTATIN [Concomitant]
  6. BYSTOLIC [Concomitant]
  7. UNKNOWN [Concomitant]
  8. IRON TABLET [Concomitant]
  9. BLOOD PRESSURE MEDICATION [Concomitant]
  10. TRAZODONE [Concomitant]
  11. XANAX [Concomitant]
  12. OXYCODONE [Concomitant]
  13. ELAVIL [Concomitant]
  14. LASIX [Concomitant]
  15. POTASSIUM [Concomitant]

REACTIONS (2)
  - Lung neoplasm malignant [Not Recovered/Not Resolved]
  - Coronary arterial stent insertion [Unknown]
